FAERS Safety Report 6228675-5 (Version None)
Quarter: 2009Q2

REPORT INFORMATION
  Report Type: 
  Country: None (occurrence: None)
  Receive Date: 20090615
  Receipt Date: 20090605
  Transmission Date: 20091009
  Serious: Yes (Other)
  Sender: FDA-Public Use
  Company Number: US-ABBOTT-09P-163-0578229-00

PATIENT
  Sex: Female
  Weight: 59.02 kg

DRUGS (4)
  1. HUMIRA [Suspect]
     Indication: RHEUMATOID ARTHRITIS
     Route: 058
     Dates: start: 20090327
  2. CEPHALEXIN [Suspect]
     Indication: INGROWING NAIL
     Dates: start: 20090511, end: 20090513
  3. METHOTREXATE [Concomitant]
     Indication: RHEUMATOID ARTHRITIS
  4. MULTIPLE VITAMINS [Concomitant]
     Indication: VITAMIN SUPPLEMENTATION

REACTIONS (7)
  - ARTHRALGIA [None]
  - FATIGUE [None]
  - GAIT DISTURBANCE [None]
  - INGROWING NAIL [None]
  - MUSCULAR WEAKNESS [None]
  - MYALGIA [None]
  - SLEEP DISORDER [None]
